FAERS Safety Report 6087150-1 (Version None)
Quarter: 2009Q1

REPORT INFORMATION
  Report Type: 
  Country: None (occurrence: None)
  Receive Date: 20090219
  Receipt Date: 20090219
  Transmission Date: 20090719
  Serious: No
  Sender: FDA-Public Use
  Company Number: None

PATIENT
  Age: 60 Year
  Sex: Female
  Weight: 77.1115 kg

DRUGS (1)
  1. ZOLPIDEM [Suspect]
     Indication: INITIAL INSOMNIA
     Dosage: 1 AT BEDTIME PO
     Route: 048
     Dates: start: 20090125, end: 20090216

REACTIONS (3)
  - DRUG INEFFECTIVE [None]
  - INSOMNIA [None]
  - PRODUCT QUALITY ISSUE [None]
